FAERS Safety Report 19922669 (Version 1)
Quarter: 2021Q4

REPORT INFORMATION
  Report Type: Spontaneous
  Country: FR (occurrence: FR)
  Receive Date: 20211006
  Receipt Date: 20211006
  Transmission Date: 20220304
  Serious: Yes (Other)
  Sender: FDA-Public Use
  Company Number: FR-AFSSAPS-AVNT20211383

PATIENT
  Age: 28 Year
  Sex: Male

DRUGS (3)
  1. TRAMADOL [Suspect]
     Active Substance: TRAMADOL
     Indication: Product used for unknown indication
     Dosage: 1.5 GRAM (SUE LEPISODE ET DEPUIS PLUSIEURS ANNEES)
     Route: 048
  2. ALCOHOL [Suspect]
     Active Substance: ALCOHOL
     Indication: Product used for unknown indication
     Dosage: 65 INTERNATIONAL UNIT, EVERY WEEK
     Route: 048
  3. COCAINE [Suspect]
     Active Substance: COCAINE
     Indication: Product used for unknown indication
     Dosage: 2 GRAM (LE WEEK END) (ON WEEKENDS)
     Route: 045

REACTIONS (1)
  - Drug dependence [Not Recovered/Not Resolved]
